FAERS Safety Report 9117436 (Version 1)
Quarter: 2013Q1

REPORT INFORMATION
  Report Type: Report from Study
  Country: US (occurrence: US)
  Receive Date: 20130129
  Receipt Date: 20130129
  Transmission Date: 20140127
  Serious: No
  Sender: FDA-Public Use
  Company Number: US-ABBOTT-12P-163-0939199-00

PATIENT
  Age: 34 Year
  Sex: Male

DRUGS (6)
  1. HUMIRA 40 MG/0.8 ML PEN [Suspect]
     Indication: PSORIASIS
     Dosage: TWO 40MG PENS ON DAY 1
     Route: 058
     Dates: start: 20120516, end: 20120516
  2. HUMIRA 40 MG/0.8 ML PEN [Suspect]
     Dosage: ONE 40MG PEN ON DAY 8
     Dates: start: 20120523, end: 20120523
  3. PROPECIA [Concomitant]
     Indication: PRODUCT USED FOR UNKNOWN INDICATION
  4. OMEGA 3 FISH OIL [Concomitant]
     Indication: PRODUCT USED FOR UNKNOWN INDICATION
  5. ASPIRIN [Concomitant]
     Indication: PRODUCT USED FOR UNKNOWN INDICATION
  6. ADDERALL [Concomitant]
     Indication: PRODUCT USED FOR UNKNOWN INDICATION

REACTIONS (3)
  - Lymphadenopathy [Unknown]
  - Fatigue [Unknown]
  - Injection site erythema [Unknown]
